FAERS Safety Report 5918725-5 (Version None)
Quarter: 2008Q4

REPORT INFORMATION
  Report Type: 
  Country: None (occurrence: None)
  Receive Date: 20081015
  Receipt Date: 20080701
  Transmission Date: 20090506
  Serious: No
  Sender: FDA-Public Use
  Company Number: US-ASTRAZENECA-2008UW13226

PATIENT
  Age: 61 Year
  Sex: Female
  Weight: 53.5 kg

DRUGS (4)
  1. SYMBICORT [Suspect]
     Indication: ASTHMA
     Dosage: 160/4.5 MCG TWO TIMES A DAY
     Route: 055
     Dates: start: 20080527
  2. COUMADIN [Concomitant]
  3. LIPITOR [Concomitant]
  4. PREVACID [Concomitant]

REACTIONS (2)
  - APHONIA [None]
  - DYSPHONIA [None]
